FAERS Safety Report 24098272 (Version 1)
Quarter: 2024Q3

REPORT INFORMATION
  Report Type: Spontaneous
  Country: JP (occurrence: JP)
  Receive Date: 20240716
  Receipt Date: 20240716
  Transmission Date: 20241017
  Serious: Yes (Death, Other)
  Sender: ELI LILLY AND CO
  Company Number: JP-Merck Healthcare KGaA-2024036050

PATIENT
  Age: 63 Year
  Sex: Male

DRUGS (2)
  1. ERBITUX [Suspect]
     Active Substance: CETUXIMAB
     Indication: Oral neoplasm
     Dosage: UNK
     Route: 041
  2. PACLITAXEL [Suspect]
     Active Substance: PACLITAXEL
     Indication: Oral neoplasm
     Dosage: UNK
     Route: 065

REACTIONS (5)
  - Intestinal ischaemia [Fatal]
  - Neutrophil count decreased [Recovering/Resolving]
  - Pyrexia [Unknown]
  - Malignant neoplasm progression [Unknown]
  - Dehydration [Unknown]
